FAERS Safety Report 6216159-X (Version None)
Quarter: 2009Q2

REPORT INFORMATION
  Report Type: 
  Country: None (occurrence: None)
  Receive Date: 20090603
  Receipt Date: 20090603
  Transmission Date: 20091009
  Serious: Yes (Hospitalization)
  Sender: FDA-Public Use
  Company Number: None

PATIENT

DRUGS (1)
  1. ERYTHROCIN [Suspect]
     Indication: PNEUMONIA
     Dates: start: 20090521, end: 20090524

REACTIONS (6)
  - BODY TEMPERATURE INCREASED [None]
  - DIARRHOEA [None]
  - FEELING HOT [None]
  - PNEUMONIA [None]
  - RETCHING [None]
  - SLEEP DISORDER DUE TO GENERAL MEDICAL CONDITION, INSOMNIA TYPE [None]
